FAERS Safety Report 8023083-9 (Version None)
Quarter: 2012Q1

REPORT INFORMATION
  Report Type: 
  Country: None (occurrence: None)
  Receive Date: 20120104
  Receipt Date: 20111228
  Transmission Date: 20120608
  Serious: Yes (Other)
  Sender: FDA-Public Use
  Company Number: US-TEVA-313064USA

PATIENT
  Sex: Female

DRUGS (2)
  1. DROSPIRENONE W/ETHINYLESTRADIOL (YAZMIN) [Concomitant]
     Indication: CONTRACEPTION
  2. CLARAVIS [Suspect]
     Route: 048
     Dates: end: 20110101

REACTIONS (2)
  - DEPRESSION [None]
  - SUICIDAL IDEATION [None]
